FAERS Safety Report 13093047 (Version 1)
Quarter: 2017Q1

REPORT INFORMATION
  Report Type: Spontaneous
  Country: US (occurrence: US)
  Receive Date: 20170106
  Receipt Date: 20170106
  Transmission Date: 20170428
  Serious: No
  Sender: FDA-Public Use
  Company Number: US-PFM-2016-01598

PATIENT
  Age: 3 Month
  Sex: Male
  Weight: 6.35 kg

DRUGS (3)
  1. HEMANGEOL [Suspect]
     Active Substance: PROPRANOLOL HYDROCHLORIDE
     Dosage: 1.8 ML, BID (2/DAY)
     Route: 048
     Dates: start: 201610
  2. HEMANGEOL [Suspect]
     Active Substance: PROPRANOLOL HYDROCHLORIDE
     Indication: PRODUCT USED FOR UNKNOWN INDICATION
     Dosage: 0.9 ML, BID (2/DAY)
     Route: 048
     Dates: start: 20161019
  3. HEMANGEOL [Suspect]
     Active Substance: PROPRANOLOL HYDROCHLORIDE
     Dosage: 2.4 ML, BID (2/DAY)
     Route: 048
     Dates: start: 201611

REACTIONS (3)
  - Sleep disorder [Unknown]
  - Vomiting [Unknown]
  - Agitation [Unknown]

NARRATIVE: CASE EVENT DATE: 2016
